APPROVED DRUG PRODUCT: DEXTROAMP SACCHARATE, AMP ASPARTATE, DEXTROAMP SULFATE AND AMP SULFATE
Active Ingredient: AMPHETAMINE ASPARTATE; AMPHETAMINE SULFATE; DEXTROAMPHETAMINE SACCHARATE; DEXTROAMPHETAMINE SULFATE
Strength: 5MG;5MG;5MG;5MG
Dosage Form/Route: CAPSULE, EXTENDED RELEASE;ORAL
Application: A077302 | Product #004 | TE Code: AB1
Applicant: ACTAVIS ELIZABETH LLC
Approved: Jun 22, 2012 | RLD: No | RS: No | Type: RX